FAERS Safety Report 5151981-2 (Version None)
Quarter: 2006Q4

REPORT INFORMATION
  Report Type: 
  Country: None (occurrence: None)
  Receive Date: 20061109
  Receipt Date: 20061030
  Transmission Date: 20070319
  Serious: Yes (Other)
  Sender: FDA-Public Use
  Company Number: 149286ISR

PATIENT
  Age: 7 Year
  Sex: Male

DRUGS (1)
  1. FLUOXETINE [Suspect]
     Dosage: 20 MG (20 MG, 1 IN 1 D)

REACTIONS (1)
  - ACUTE MYELOID LEUKAEMIA [None]
